FAERS Safety Report 24411533 (Version 1)
Quarter: 2024Q4

REPORT INFORMATION
  Report Type: Spontaneous
  Country: US (occurrence: None)
  Receive Date: 20241007
  Receipt Date: 20241007
  Transmission Date: 20250115
  Serious: Yes (Hospitalization)
  Sender: Public
  Company Number: None

PATIENT
  Age: 66 Year
  Sex: Male
  Weight: 64 kg

DRUGS (1)
  1. DIVALPROEX SODIUM [Suspect]
     Active Substance: DIVALPROEX SODIUM
     Indication: Headache
     Dosage: FREQUENCY : DAILY;?
     Route: 048
     Dates: end: 20240509

REACTIONS (2)
  - Tremor [None]
  - Muscular weakness [None]

NARRATIVE: CASE EVENT DATE: 20240509
